FAERS Safety Report 24657335 (Version 1)
Quarter: 2024Q4

REPORT INFORMATION
  Report Type: Spontaneous
  Country: FR (occurrence: FR)
  Receive Date: 20241125
  Receipt Date: 20241125
  Transmission Date: 20250115
  Serious: Yes (Other)
  Sender: CIPLA
  Company Number: FR-CIPLA LTD.-2024FR13370

PATIENT

DRUGS (1)
  1. VALGANCICLOVIR [Suspect]
     Active Substance: VALGANCICLOVIR
     Dosage: UNK
     Route: 064

REACTIONS (2)
  - Hepatic cytolysis [Unknown]
  - Foetal exposure during pregnancy [Unknown]
